FAERS Safety Report 8972560 (Version 1)
Quarter: 2012Q4

REPORT INFORMATION
  Report Type: 
  Country: BE (occurrence: BE)
  Receive Date: 20121219
  Receipt Date: 20121219
  Transmission Date: 20130627
  Serious: Yes (Other)
  Sender: FDA-Public Use
  Company Number: BE-SANOFI-AVENTIS-2011SA075289

PATIENT
  Age: 66 Year
  Sex: Male

DRUGS (5)
  1. PLAVIX [Suspect]
     Indication: VENOUS THROMBOEMBOLISM PROPHYLAXIS
     Route: 048
     Dates: start: 20111010
  2. ASPIRIN [Concomitant]
     Indication: PROPHYLAXIS
     Route: 048
     Dates: start: 201106
  3. BISOPROLOL [Concomitant]
     Indication: ARRHYTHMIA
     Route: 048
     Dates: start: 201108, end: 20111222
  4. FLUNITRAZEPAM [Concomitant]
     Indication: SLEEP DISORDER
     Route: 048
  5. ASPIRIN CARDIO [Concomitant]
     Dosage: STRENGTH: 100 MG

REACTIONS (6)
  - Cognitive disorder [Not Recovered/Not Resolved]
  - Dyspnoea [Not Recovered/Not Resolved]
  - Off label use [Unknown]
  - Myalgia [Not Recovered/Not Resolved]
  - Gastrointestinal disorder [Not Recovered/Not Resolved]
  - Drug administration error [Unknown]
